FAERS Safety Report 18304793 (Version 1)
Quarter: 2020Q3

REPORT INFORMATION
  Report Type: Spontaneous
  Country: US (occurrence: US)
  Receive Date: 20200924
  Receipt Date: 20200924
  Transmission Date: 20201103
  Serious: No
  Sender: FDA-Public Use
  Company Number: US-GLENMARK PHARMACEUTICALS-2020GMK048439

PATIENT

DRUGS (3)
  1. DESONIDE OINTMENT, 0.05% [Suspect]
     Active Substance: DESONIDE
     Indication: LIP DRY
     Dosage: UNK, PRN (AT BED TIME AS NEEDED)
     Route: 061
  2. GOLD BOND ORIGINAL STRENGTH POWDER [Concomitant]
     Active Substance: MENTHOL\ZINC OXIDE
     Indication: ECZEMA
     Dosage: UNK
     Route: 065
  3. DESONIDE CREAM [Suspect]
     Active Substance: DESONIDE
     Indication: DRY SKIN
     Dosage: UNK, AT BEDTIME
     Route: 065

REACTIONS (2)
  - Product use in unapproved indication [Unknown]
  - Drug effective for unapproved indication [Unknown]
